FAERS Safety Report 16149291 (Version 4)
Quarter: 2019Q2

REPORT INFORMATION
  Report Type: Spontaneous
  Country: US (occurrence: US)
  Receive Date: 20190402
  Receipt Date: 20190606
  Transmission Date: 20190711
  Serious: Yes (Other)
  Sender: FDA-Public Use
  Company Number: US-ASTRAZENECA-2019SE48616

PATIENT
  Age: 52 Year
  Sex: Male
  Weight: 106.6 kg

DRUGS (11)
  1. SEROQUEL [Suspect]
     Active Substance: QUETIAPINE FUMARATE
     Indication: SCHIZOAFFECTIVE DISORDER BIPOLAR TYPE
     Route: 048
  2. SEROQUEL [Suspect]
     Active Substance: QUETIAPINE FUMARATE
     Indication: SCHIZOAFFECTIVE DISORDER BIPOLAR TYPE
     Route: 048
  3. SEROQUEL [Suspect]
     Active Substance: QUETIAPINE FUMARATE
     Indication: BIPOLAR I DISORDER
     Route: 048
  4. SEROQUEL [Suspect]
     Active Substance: QUETIAPINE FUMARATE
     Indication: INSOMNIA
     Route: 048
  5. SEROQUEL [Suspect]
     Active Substance: QUETIAPINE FUMARATE
     Indication: BIPOLAR I DISORDER
     Route: 048
  6. LANTUS [Concomitant]
     Active Substance: INSULIN GLARGINE
  7. SEROQUEL [Suspect]
     Active Substance: QUETIAPINE FUMARATE
     Indication: INSOMNIA
     Route: 048
  8. NOVOLOG [Concomitant]
     Active Substance: INSULIN ASPART
  9. HALDOL [Concomitant]
     Active Substance: HALOPERIDOL
  10. ABILIFY [Concomitant]
     Active Substance: ARIPIPRAZOLE
  11. MULTIPLE VITAMIN [Concomitant]
     Active Substance: VITAMINS

REACTIONS (24)
  - Visual impairment [Unknown]
  - Hypoaesthesia [Not Recovered/Not Resolved]
  - Pollakiuria [Unknown]
  - Malaise [Unknown]
  - Impaired healing [Unknown]
  - Dyspnoea [Unknown]
  - Weight increased [Not Recovered/Not Resolved]
  - Depression [Recovering/Resolving]
  - Arthritis [Not Recovered/Not Resolved]
  - Type 1 diabetes mellitus [Not Recovered/Not Resolved]
  - Memory impairment [Unknown]
  - Sciatica [Not Recovered/Not Resolved]
  - Tongue movement disturbance [Unknown]
  - Blood glucose increased [Unknown]
  - Pain [Not Recovered/Not Resolved]
  - Dysstasia [Not Recovered/Not Resolved]
  - Bradyphrenia [Unknown]
  - Scratch [Not Recovered/Not Resolved]
  - Dysphagia [Unknown]
  - Neuropathy peripheral [Unknown]
  - Foot amputation [Unknown]
  - Somnolence [Unknown]
  - Gastric disorder [Unknown]
  - Pharyngeal disorder [Unknown]

NARRATIVE: CASE EVENT DATE: 2004
